FAERS Safety Report 9683873 (Version 1)
Quarter: 2013Q4

REPORT INFORMATION
  Report Type: Spontaneous
  Country: US (occurrence: US)
  Receive Date: 20131112
  Receipt Date: 20131112
  Transmission Date: 20140711
  Serious: No
  Sender: FDA-Public Use
  Company Number: US-MALLINCKRODT-T201304156

PATIENT
  Age: 57 Year
  Sex: Male
  Weight: 82.86 kg

DRUGS (3)
  1. FENTANYL TRANSDERMAL SYSTEM [Suspect]
     Indication: BACK INJURY
     Dosage: 100 MCG/HR Q 72 HOURS
     Route: 062
     Dates: start: 201302
  2. FENTANYL TRANSDERMAL SYSTEM [Suspect]
     Indication: LIMB INJURY
  3. TRAZODONE [Concomitant]
     Indication: INSOMNIA
     Dosage: 150 MG, QD
     Route: 048

REACTIONS (4)
  - Inappropriate schedule of drug administration [Recovered/Resolved]
  - Weight increased [Not Recovered/Not Resolved]
  - Drug effect delayed [Not Recovered/Not Resolved]
  - Drug effect decreased [Not Recovered/Not Resolved]
